FAERS Safety Report 4634800-X (Version None)
Quarter: 2005Q2

REPORT INFORMATION
  Report Type: 
  Country: None (occurrence: None)
  Receive Date: 20050412
  Receipt Date: 20050412
  Transmission Date: 20051028
  Serious: Yes (Life-Threatening, Other)
  Sender: FDA-Public Use
  Company Number: None

PATIENT
  Sex: Male
  Weight: 74.8435 kg

DRUGS (2)
  1. PAXIL CR [Suspect]
     Indication: DEPRESSION
     Dates: start: 20010101, end: 20050411
  2. WELLBUTRIN [Suspect]
     Indication: DEPRESSION
     Dates: start: 20010101, end: 20050411

REACTIONS (4)
  - DIZZINESS [None]
  - HEADACHE [None]
  - TINNITUS [None]
  - TREATMENT NONCOMPLIANCE [None]
